FAERS Safety Report 12585308 (Version 1)
Quarter: 2016Q3

REPORT INFORMATION
  Report Type: Spontaneous
  Country: US (occurrence: US)
  Receive Date: 20160723
  Receipt Date: 20160723
  Transmission Date: 20161109
  Serious: Yes (Other)
  Sender: FDA-Public Use
  Company Number: US-JNJFOC-20160710135

PATIENT

DRUGS (2)
  1. TYLENOL [Suspect]
     Active Substance: ACETAMINOPHEN
     Indication: PRODUCT USED FOR UNKNOWN INDICATION
     Dosage: 48 TYLENOL PILLS IN LESS THEN 24 HOURS
     Route: 050
  2. TYLENOL [Suspect]
     Active Substance: ACETAMINOPHEN
     Route: 050

REACTIONS (1)
  - Overdose [Unknown]
